FAERS Safety Report 12417049 (Version 1)
Quarter: 2016Q2

REPORT INFORMATION
  Report Type: Spontaneous
  Country: GB (occurrence: GB)
  Receive Date: 20160530
  Receipt Date: 20160530
  Transmission Date: 20160815
  Serious: Yes (Other)
  Sender: FDA-Public Use
  Company Number: GB-PFIZER INC-2016241691

PATIENT
  Sex: Female

DRUGS (2)
  1. DOCETAXEL. [Suspect]
     Active Substance: DOCETAXEL
     Dosage: UNK
     Route: 065
  2. HERCEPTIN [Suspect]
     Active Substance: TRASTUZUMAB
     Dosage: 600 MG, EVERY 3 WEEKS
     Route: 058

REACTIONS (14)
  - Uterine prolapse [Unknown]
  - Nasopharyngitis [Unknown]
  - Alopecia [Unknown]
  - Pollakiuria [Unknown]
  - Fatigue [Unknown]
  - Dyspepsia [Unknown]
  - Constipation [Unknown]
  - Rash [Unknown]
  - Neuropathy peripheral [Not Recovered/Not Resolved]
  - Cyst [Unknown]
  - Headache [Unknown]
  - Blood pressure increased [Unknown]
  - Feeling hot [Recovering/Resolving]
  - Uterine polyp [Unknown]
